FAERS Safety Report 16807813 (Version 3)
Quarter: 2019Q4

REPORT INFORMATION
  Report Type: Spontaneous
  Country: BR (occurrence: BR)
  Receive Date: 20190915
  Receipt Date: 20191015
  Transmission Date: 20200122
  Serious: Yes (Hospitalization, Other)
  Sender: FDA-Public Use
  Company Number: PHHY2019BR213237

PATIENT
  Age: 46 Year
  Sex: Male

DRUGS (2)
  1. IMATINIB. [Suspect]
     Active Substance: IMATINIB MESYLATE
     Indication: CHRONIC MYELOID LEUKAEMIA
     Dosage: 400 MG, QD
     Route: 048
     Dates: start: 20040131, end: 20180419
  2. IMATINIB. [Suspect]
     Active Substance: IMATINIB MESYLATE
     Dosage: 300 MG, QD
     Route: 048

REACTIONS (16)
  - Viral myelitis [Unknown]
  - Burning sensation [Unknown]
  - Depression [Recovering/Resolving]
  - Dysaesthesia [Recovered/Resolved]
  - Neuralgia [Unknown]
  - Anxiety [Recovering/Resolving]
  - Drug ineffective [Unknown]
  - Peripheral motor neuropathy [Not Recovered/Not Resolved]
  - Gait disturbance [Unknown]
  - Degenerative bone disease [Unknown]
  - Axonal neuropathy [Not Recovered/Not Resolved]
  - Mental disorder [Recovering/Resolving]
  - Viral infection [Unknown]
  - Asthenia [Recovered/Resolved]
  - Neuropathy peripheral [Not Recovered/Not Resolved]
  - Paraesthesia [Not Recovered/Not Resolved]

NARRATIVE: CASE EVENT DATE: 20071117
